FAERS Safety Report 6584657-5 (Version None)
Quarter: 2010Q1

REPORT INFORMATION
  Report Type: 
  Country: None (occurrence: None)
  Receive Date: 20100217
  Receipt Date: 20010316
  Transmission Date: 20100710
  Serious: Yes (Other)
  Sender: FDA-Public Use
  Company Number: US-ASTRAZENECA-2001UW02765

PATIENT

DRUGS (2)
  1. SEROQUEL [Suspect]
     Route: 048
  2. ZOCOR [Suspect]

REACTIONS (1)
  - RHABDOMYOLYSIS [None]
